FAERS Safety Report 21723948 (Version 1)
Quarter: 2022Q4

REPORT INFORMATION
  Report Type: Spontaneous
  Country: US (occurrence: US)
  Receive Date: 20221213
  Receipt Date: 20221213
  Transmission Date: 20230113
  Serious: Yes (Hospitalization)
  Sender: FDA-Public Use
  Company Number: US-LUNDBECK-DKLU3055457

PATIENT
  Age: 18 Year
  Sex: Male

DRUGS (7)
  1. SABRIL [Suspect]
     Active Substance: VIGABATRIN
     Indication: Idiopathic generalised epilepsy
     Route: 048
     Dates: start: 201411
  2. SABRIL [Suspect]
     Active Substance: VIGABATRIN
     Indication: Partial seizures
     Route: 048
     Dates: start: 201603
  3. SABRIL [Suspect]
     Active Substance: VIGABATRIN
     Indication: Focal dyscognitive seizures
  4. SABRIL [Suspect]
     Active Substance: VIGABATRIN
     Indication: Epilepsy
  5. ONFI [Concomitant]
     Active Substance: CLOBAZAM
     Indication: Product used for unknown indication
     Route: 065
  6. TOPAMAX [Concomitant]
     Active Substance: TOPIRAMATE
     Indication: Product used for unknown indication
     Route: 065
  7. KEPPRA [Concomitant]
     Active Substance: LEVETIRACETAM
     Indication: Product used for unknown indication
     Route: 065

REACTIONS (1)
  - Pulmonary sepsis [Recovered/Resolved]

NARRATIVE: CASE EVENT DATE: 20221102
